FAERS Safety Report 8056594-0 (Version None)
Quarter: 2012Q1

REPORT INFORMATION
  Report Type: 
  Country: None (occurrence: None)
  Receive Date: 20120119
  Receipt Date: 20110125
  Transmission Date: 20120608
  Serious: No
  Sender: FDA-Public Use
  Company Number: US-SANOFI-AVENTIS-2011SA006357

PATIENT
  Age: 64 Year
  Sex: Female

DRUGS (2)
  1. BENICAR HCT [Suspect]
     Route: 065
  2. LASIX [Suspect]
     Route: 065

REACTIONS (3)
  - ASTHENIA [None]
  - SOMNOLENCE [None]
  - OEDEMA [None]
